FAERS Safety Report 17427402 (Version 1)
Quarter: 2020Q1

REPORT INFORMATION
  Report Type: Spontaneous
  Country: US (occurrence: US)
  Receive Date: 20200131
  Receipt Date: 20200131
  Transmission Date: 20200409
  Serious: No
  Sender: FDA-Public Use
  Company Number: None

PATIENT

DRUGS (2)
  1. METOPROLOL TARTRATE. [Suspect]
     Active Substance: METOPROLOL TARTRATE
  2. TRAMADOL. [Suspect]
     Active Substance: TRAMADOL

REACTIONS (4)
  - Wrong product administered [None]
  - Emotional disorder [None]
  - Product dispensing error [None]
  - Dizziness [None]

NARRATIVE: CASE EVENT DATE: 2019
